FAERS Safety Report 8785675 (Version 1)
Quarter: 2012Q4

REPORT INFORMATION
  Report Type: Spontaneous
  Country: US (occurrence: None)
  Receive Date: 20120904
  Receipt Date: 20120904
  Transmission Date: 20130627
  Serious: Yes (Hospitalization)
  Sender: FDA-Public Use
  Company Number: 110408-000051

PATIENT
  Age: 58 Year
  Sex: Female

DRUGS (15)
  1. PROACTIV CLEANSER [Suspect]
     Indication: ACNE
     Route: 061
     Dates: start: 20110315
  2. REPAIRING TREATMENT [Suspect]
     Indication: ACNE
     Dates: start: 20110315
  3. SULFUR [Suspect]
     Indication: ACNE
     Dates: start: 20110315
  4. ALLOPURINOL [Concomitant]
  5. HCTZ [Concomitant]
  6. LEXAPRO [Concomitant]
  7. TIZANIDINE HCL [Concomitant]
  8. OPANA [Concomitant]
  9. FLURAZEPAM [Concomitant]
  10. REQUIP [Concomitant]
  11. TRIMETHOPRIM [Concomitant]
  12. VITAMIN D3 [Concomitant]
  13. D6 [Concomitant]
  14. TEGRETOL [Concomitant]
  15. KEPPRA [Concomitant]

REACTIONS (5)
  - Burning sensation [None]
  - Erythema [None]
  - Urticaria [None]
  - Dry skin [None]
  - Skin exfoliation [None]
